FAERS Safety Report 14702506 (Version 2)
Quarter: 2018Q2

REPORT INFORMATION
  Report Type: Spontaneous
  Country: US (occurrence: US)
  Receive Date: 20180401
  Receipt Date: 20180629
  Transmission Date: 20180711
  Serious: No
  Sender: FDA-Public Use
  Company Number: US-ASTRAZENECA-2018SE31187

PATIENT
  Sex: Female

DRUGS (3)
  1. FASENRA [Suspect]
     Active Substance: BENRALIZUMAB
     Indication: CONDITION AGGRAVATED
     Route: 058
     Dates: start: 20180213
  2. PREDNISONE. [Concomitant]
     Active Substance: PREDNISONE
     Route: 048
  3. FASENRA [Suspect]
     Active Substance: BENRALIZUMAB
     Indication: ASTHMA
     Route: 058
     Dates: start: 20180213

REACTIONS (7)
  - Gastrointestinal disorder [Unknown]
  - Nasal disorder [Unknown]
  - Swollen tongue [Unknown]
  - Pharyngitis [Unknown]
  - Ear disorder [Unknown]
  - Pharyngeal oedema [Unknown]
  - Choking [Unknown]
